FAERS Safety Report 9784173 (Version 2)
Quarter: 2014Q1

REPORT INFORMATION
  Report Type: Spontaneous
  Country: US (occurrence: US)
  Receive Date: 20131226
  Receipt Date: 20140203
  Transmission Date: 20141002
  Serious: Yes (Death)
  Sender: FDA-Public Use
  Company Number: US-PFIZER INC-2013367403

PATIENT
  Age: 70 Year
  Sex: Male
  Weight: 72.56 kg

DRUGS (2)
  1. VFEND [Suspect]
     Indication: PNEUMONIA FUNGAL
     Dosage: 200 MG, 2X/DAY
     Dates: start: 201309
  2. ACYCLOVIR [Concomitant]
     Dosage: UNK

REACTIONS (1)
  - Acute myeloid leukaemia [Fatal]
